FAERS Safety Report 4387723-8 (Version None)
Quarter: 2004Q2

REPORT INFORMATION
  Report Type: 
  Country: None (occurrence: None)
  Receive Date: 20040625
  Receipt Date: 20040621
  Transmission Date: 20050107
  Serious: No
  Sender: FDA-Public Use
  Company Number: 20041903

PATIENT
  Sex: Male

DRUGS (2)
  1. LIORESAL [Suspect]
     Indication: MUSCLE SPASTICITY
     Dosage: UNK MCG, DAILY, INTRATHECAL
     Route: 037
  2. DILAUDID [Concomitant]

REACTIONS (5)
  - BURNING SENSATION [None]
  - DYSGEUSIA [None]
  - HYPOAESTHESIA [None]
  - OEDEMA PERIPHERAL [None]
  - PAIN [None]
